FAERS Safety Report 9736343 (Version 1)
Quarter: 2013Q4

REPORT INFORMATION
  Report Type: Spontaneous
  Country: US (occurrence: None)
  Receive Date: 20131204
  Receipt Date: 20131204
  Transmission Date: 20140711
  Serious: Yes (Death, Hospitalization)
  Sender: FDA-Public Use
  Company Number: US-ALKEM-000304

PATIENT
  Age: 51 Year
  Sex: Female

DRUGS (6)
  1. GABAPENTIN [Suspect]
     Route: 048
  2. CARVEDILOL [Suspect]
     Route: 048
  3. INSULIN [Suspect]
  4. QUETIAPINE [Suspect]
     Route: 048
  5. LORAZEPAM [Suspect]
     Route: 048
  6. ATORVASTATIN [Suspect]
     Route: 048

REACTIONS (1)
  - Completed suicide [None]
